FAERS Safety Report 5473007-3 (Version None)
Quarter: 2007Q4

REPORT INFORMATION
  Report Type: 
  Country: None (occurrence: None)
  Receive Date: 20071001
  Receipt Date: 20070223
  Transmission Date: 20080405
  Serious: No
  Sender: FDA-Public Use
  Company Number: US-ASTRAZENECA-2007UW03553

PATIENT
  Age: 78 Year
  Sex: Female

DRUGS (1)
  1. ARIMIDEX [Suspect]
     Indication: BREAST CANCER
     Route: 048
     Dates: start: 20040101

REACTIONS (2)
  - ALOPECIA [None]
  - SKIN DISORDER [None]
